FAERS Safety Report 9096591 (Version 1)
Quarter: 2013Q1

REPORT INFORMATION
  Report Type: Spontaneous
  Country: US (occurrence: None)
  Receive Date: 20130124
  Receipt Date: 20130124
  Transmission Date: 20140127
  Serious: Yes (Hospitalization)
  Sender: FDA-Public Use
  Company Number: ALK-2013-001219

PATIENT
  Age: 25 Year
  Sex: Male
  Weight: 103.4 kg

DRUGS (2)
  1. VIVITROL (VIVITROL_NDA) INJECTION, 380MG [Suspect]
     Indication: ALCOHOLISM
     Route: 030
     Dates: start: 20130109
  2. PROZAC (FLUOXETINE HYDROCHLORIDE) [Concomitant]

REACTIONS (5)
  - Bundle branch block left [None]
  - Electrocardiogram abnormal [None]
  - Chest pain [None]
  - Blood pressure [None]
  - Somnolence [None]
